FAERS Safety Report 10176913 (Version 2)
Quarter: 2014Q2

REPORT INFORMATION
  Report Type: Spontaneous
  Country: JP (occurrence: JP)
  Receive Date: 20140516
  Receipt Date: 20140624
  Transmission Date: 20141212
  Serious: Yes (Other)
  Sender: FDA-Public Use
  Company Number: JP-PFIZER INC-2014133695

PATIENT
  Age: 66 Year
  Sex: Male

DRUGS (2)
  1. CABERGOLINE [Suspect]
     Indication: HYPERPROLACTINAEMIA
     Dosage: 1 MG, DAILY
     Route: 048
  2. CABERGOLINE [Suspect]
     Indication: PITUITARY TUMOUR BENIGN

REACTIONS (2)
  - Hepatic neoplasm [Not Recovered/Not Resolved]
  - Epilepsy [Recovered/Resolved]
